FAERS Safety Report 7997384-4 (Version None)
Quarter: 2011Q4

REPORT INFORMATION
  Report Type: 
  Country: None (occurrence: None)
  Receive Date: 20111221
  Receipt Date: 20111219
  Transmission Date: 20120403
  Serious: Yes (Hospitalization, Other)
  Sender: FDA-Public Use
  Company Number: US-BAYER-US-2006-010982

PATIENT
  Age: 56 Year
  Sex: Female
  Weight: 78 kg

DRUGS (14)
  1. BETASERON [Suspect]
     Dosage: 8 MIU, QOD
     Route: 058
     Dates: start: 20110920
  2. CETIRIZINE HCL [Concomitant]
     Indication: SEASONAL ALLERGY
     Dosage: 10 MG, 1X/DAY
  3. SYNTHROID [Concomitant]
     Dosage: 75 ?G, 1/2 A TAB
     Dates: start: 20080101
  4. DIGOXIN [Concomitant]
     Dosage: .125 MG, 1X/DAY
     Route: 048
     Dates: end: 20060512
  5. CALCIUM CARBONATE [Concomitant]
  6. BETASERON [Suspect]
     Indication: RELAPSING-REMITTING MULTIPLE SCLEROSIS
     Dosage: 8 MIU, EVERY 2D
     Route: 058
     Dates: start: 20050308, end: 20050428
  7. RYTHMOL [Concomitant]
     Dosage: 225 MG, 2X/DAY
     Route: 048
     Dates: start: 20060512
  8. AMIODARONE HCL [Concomitant]
     Dosage: 200 MG, UNK
     Dates: start: 20050101
  9. LISINOPRIL [Concomitant]
     Dosage: 10 MG, UNK
     Dates: start: 20050101
  10. ZOLPIDEM [Concomitant]
     Dosage: UNK
     Dates: start: 20060101
  11. ACETYLSALICYLIC ACID SRT [Concomitant]
     Indication: PROPHYLAXIS
     Dosage: 81 MG, 1X/DAY
     Route: 048
  12. ESTRATEST H.S. [Concomitant]
     Indication: HORMONE REPLACEMENT THERAPY
     Dosage: 1 TAB(S), BED T. [DAILY DOSE: 1 TAB(S)]
     Route: 048
  13. FEMARA [Concomitant]
     Dosage: 2.5 MG, UNK
     Dates: start: 20101001
  14. BETASERON [Suspect]
     Dosage: UNK
     Dates: start: 20050517, end: 20100401

REACTIONS (9)
  - ATRIAL FIBRILLATION [None]
  - ASTHENIA [None]
  - DIZZINESS [None]
  - BREAST CANCER FEMALE [None]
  - SKIN INFECTION [None]
  - HAEMOGLOBIN DECREASED [None]
  - HAEMATOCHEZIA [None]
  - ATRIAL FLUTTER [None]
  - INJECTION SITE ERYTHEMA [None]
